FAERS Safety Report 10677192 (Version 2)
Quarter: 2014Q4

REPORT INFORMATION
  Report Type: Spontaneous
  Country: GB (occurrence: GB)
  Receive Date: 20141226
  Receipt Date: 20141226
  Transmission Date: 20150529
  Serious: Yes (Life-Threatening, Hospitalization, Disabling, Other)
  Sender: FDA-Public Use
  Company Number: PHFR2014GB004904

PATIENT
  Age: 55 Year
  Sex: Male
  Weight: 80 kg

DRUGS (2)
  1. TEGRETOL [Suspect]
     Active Substance: CARBAMAZEPINE
     Indication: ALCOHOL WITHDRAWAL SYNDROME
     Dosage: 200 MG, BID
     Route: 048
     Dates: start: 20140508, end: 20140601
  2. CITALOPRAM [Concomitant]
     Active Substance: CITALOPRAM HYDROBROMIDE
     Indication: PRODUCT USED FOR UNKNOWN INDICATION
     Route: 065

REACTIONS (14)
  - Onychomadesis [Unknown]
  - Toxic epidermal necrolysis [Recovered/Resolved with Sequelae]
  - Abnormal loss of weight [Unknown]
  - Corneal irritation [Unknown]
  - Onycholysis [Unknown]
  - Entropion [Unknown]
  - Dry eye [Unknown]
  - Multi-organ failure [Unknown]
  - Photophobia [Unknown]
  - Blister [Unknown]
  - Renal failure [Unknown]
  - Skin exfoliation [Unknown]
  - Muscle atrophy [Unknown]
  - Phimosis [Unknown]

NARRATIVE: CASE EVENT DATE: 20140601
